FAERS Safety Report 15345167 (Version 2)
Quarter: 2018Q3

REPORT INFORMATION
  Report Type: Spontaneous
  Country: DE (occurrence: DE)
  Receive Date: 20180903
  Receipt Date: 20180903
  Transmission Date: 20181010
  Serious: Yes (Other)
  Sender: FDA-Public Use
  Company Number: PHHY2018DE087363

PATIENT
  Sex: Female

DRUGS (3)
  1. PREDNISOLONE. [Suspect]
     Active Substance: PREDNISOLONE
     Indication: ADRENAL INSUFFICIENCY
     Dosage: 2 MG, QD
     Route: 065
  2. EUTHYROX [Interacting]
     Active Substance: LEVOTHYROXINE SODIUM
     Indication: PRODUCT USED FOR UNKNOWN INDICATION
     Dosage: 62.5 UG, QD
     Route: 065
  3. EUTHYROX [Interacting]
     Active Substance: LEVOTHYROXINE SODIUM
     Dosage: 50 UG, QD
     Route: 065

REACTIONS (3)
  - Hyperthyroidism [Unknown]
  - Blood thyroid stimulating hormone increased [Unknown]
  - Drug interaction [Unknown]
